FAERS Safety Report 5242760-6 (Version None)
Quarter: 2007Q1

REPORT INFORMATION
  Report Type: 
  Country: None (occurrence: None)
  Receive Date: 20061201
  Receipt Date: 20060701
  Transmission Date: 20070707
  Serious: No
  Sender: FDA-Public Use
  Company Number: 2006PV012860

PATIENT
  Age: 58 Year
  Sex: Female
  Weight: 117.028 kg

DRUGS (3)
  1. BYETTA [Suspect]
     Indication: DIABETES MELLITUS NON-INSULIN-DEPENDENT
     Dosage: SEE IMAGE
     Route: 058
     Dates: start: 20060101, end: 20060101
  2. BYETTA [Suspect]
     Indication: DIABETES MELLITUS NON-INSULIN-DEPENDENT
     Dosage: SEE IMAGE
     Route: 058
     Dates: start: 20060301
  3. GLUCOPHAGE [Concomitant]

REACTIONS (5)
  - DECREASED APPETITE [None]
  - DYSPEPSIA [None]
  - HEADACHE [None]
  - HEPATIC ENZYME INCREASED [None]
  - NAUSEA [None]
